FAERS Safety Report 5234773-5 (Version None)
Quarter: 2007Q1

REPORT INFORMATION
  Report Type: 
  Country: None (occurrence: None)
  Receive Date: 20070209
  Receipt Date: 20070207
  Transmission Date: 20070707
  Serious: Yes (Other)
  Sender: FDA-Public Use
  Company Number: FR-ROXANE LABORATORIES, INC-2007-DE-00789GD

PATIENT
  Age: 34 Year
  Sex: Male

DRUGS (1)
  1. PREDNISONE [Suspect]
     Indication: ASTHMA
     Dosage: 40 MG/D FOR 5 - 7 DAYS AT EACH ATTACK
     Route: 048

REACTIONS (3)
  - BACK PAIN [None]
  - LUMBAR VERTEBRAL FRACTURE [None]
  - OSTEOPOROTIC FRACTURE [None]
